FAERS Safety Report 13725023 (Version 1)
Quarter: 2017Q3

REPORT INFORMATION
  Report Type: Other
  Country: None (occurrence: US)
  Receive Date: 20170706
  Receipt Date: 20170706
  Transmission Date: 20171127
  Serious: Yes (Other)
  Sender: FDA-Public Use
  Company Number: US-GUTHY-RENKER LLC-2023022

PATIENT
  Age: 34 Year
  Sex: Female

DRUGS (3)
  1. PROACTIV PLUS SKIN PURIFYING MASK [Suspect]
     Active Substance: SULFUR
     Route: 061
     Dates: start: 20160331
  2. PROACTIV RENEWING CLEANSER [Suspect]
     Active Substance: BENZOYL PEROXIDE
     Route: 061
     Dates: start: 20160330, end: 20160331
  3. PROACTIV SOLUTION REPAIRING TREATMENT [Suspect]
     Active Substance: BENZOYL PEROXIDE
     Indication: ACNE
     Route: 061
     Dates: start: 20160330, end: 20160331

REACTIONS (5)
  - Rash macular [None]
  - Skin exfoliation [Recovering/Resolving]
  - Wound [None]
  - Application site reaction [None]
  - Injury [None]

NARRATIVE: CASE EVENT DATE: 20160401
